FAERS Safety Report 5269069-9 (Version None)
Quarter: 2007Q1

REPORT INFORMATION
  Report Type: 
  Country: None (occurrence: None)
  Receive Date: 20070319
  Receipt Date: 20070308
  Transmission Date: 20070707
  Serious: Yes (Hospitalization)
  Sender: FDA-Public Use
  Company Number: FR-ROCHE-486616

PATIENT
  Age: 34 Year
  Sex: Female

DRUGS (2)
  1. APRANAX [Suspect]
     Indication: ABDOMINAL PAIN
     Dosage: DOSAGE REGIMEN REPORTED AS 1 DOSE BID.
     Route: 048
     Dates: start: 20070131, end: 20070203
  2. ACETAMINOPHEN AND TRAMADOL HCL [Suspect]
     Indication: ABDOMINAL PAIN
     Route: 048
     Dates: start: 20070131, end: 20070203

REACTIONS (5)
  - ALANINE AMINOTRANSFERASE INCREASED [None]
  - ASPARTATE AMINOTRANSFERASE INCREASED [None]
  - BLOOD ALKALINE PHOSPHATASE INCREASED [None]
  - C-REACTIVE PROTEIN INCREASED [None]
  - GAMMA-GLUTAMYLTRANSFERASE INCREASED [None]
